FAERS Safety Report 5422535-5 (Version None)
Quarter: 2007Q3

REPORT INFORMATION
  Report Type: 
  Country: None (occurrence: None)
  Receive Date: 20070822
  Receipt Date: 20070813
  Transmission Date: 20080115
  Serious: Yes (Other)
  Sender: FDA-Public Use
  Company Number: JP-SANOFI-SYNTHELABO-A01200708677

PATIENT
  Sex: Male
  Weight: 85 kg

DRUGS (3)
  1. FLUOROURACIL [Suspect]
     Dosage: 770 MG/BODY IN BOLUS THEN 4600 MG/BODY AS INFUSION
     Route: 042
     Dates: start: 20060816, end: 20060817
  2. ISOVORIN [Suspect]
     Dosage: 375 MG/BODY=193.3 MG/M2
     Route: 041
     Dates: start: 20060816, end: 20060816
  3. ELPLAT [Suspect]
     Indication: LARGE INTESTINE CARCINOMA
     Route: 041
     Dates: start: 20060816, end: 20060816

REACTIONS (2)
  - NEUTROPENIA [None]
  - VENOOCCLUSIVE LIVER DISEASE [None]
